FAERS Safety Report 24818857 (Version 1)
Quarter: 2025Q1

REPORT INFORMATION
  Report Type: Spontaneous
  Country: US (occurrence: None)
  Receive Date: 20250107
  Receipt Date: 20250107
  Transmission Date: 20250408
  Serious: Yes (Life-Threatening)
  Sender: FDA-CTU
  Company Number: None

PATIENT
  Age: 53 Year
  Sex: Female
  Weight: 99 kg

DRUGS (3)
  1. MOTEGRITY [Suspect]
     Active Substance: PRUCALOPRIDE SUCCINATE
     Indication: Constipation
     Dosage: OTHER QUANTITY : 1 TABLET(S);?FREQUENCY : DAILY;?
     Route: 048
     Dates: start: 20241101, end: 20250106
  2. ALDACTONE [Concomitant]
     Active Substance: SPIRONOLACTONE
  3. GEMTESA [Concomitant]
     Active Substance: VIBEGRON

REACTIONS (3)
  - Feeling of despair [None]
  - Depression [None]
  - Negative thoughts [None]

NARRATIVE: CASE EVENT DATE: 20250106
